FAERS Safety Report 24624644 (Version 2)
Quarter: 2025Q1

REPORT INFORMATION
  Report Type: Spontaneous
  Country: CA (occurrence: CA)
  Receive Date: 20241115
  Receipt Date: 20250130
  Transmission Date: 20250409
  Serious: Yes (Other)
  Sender: SANOFI AVENTIS
  Company Number: CA-SA-2024SA323488

PATIENT
  Age: 35 Year
  Sex: Female

DRUGS (19)
  1. DUPILUMAB [Suspect]
     Active Substance: DUPILUMAB
     Indication: Dermatitis atopic
     Dosage: 300 MG, Q4W
     Route: 058
  2. DUPILUMAB [Suspect]
     Active Substance: DUPILUMAB
     Indication: Cheilitis
  3. DUPILUMAB [Suspect]
     Active Substance: DUPILUMAB
     Indication: Oral pustule
  4. DUPILUMAB [Suspect]
     Active Substance: DUPILUMAB
     Indication: Prophylaxis
  5. HYDROCORTISONE [Suspect]
     Active Substance: HYDROCORTISONE
     Indication: Cheilitis
  6. CRISABOROLE [Suspect]
     Active Substance: CRISABOROLE
     Indication: Dermatitis atopic
     Dosage: 1 DF, Q12H
  7. CRISABOROLE [Suspect]
     Active Substance: CRISABOROLE
     Indication: Cheilitis
  8. DAPSONE [Suspect]
     Active Substance: DAPSONE
     Indication: Cheilitis
     Dosage: 5 %, Q12H
  9. DOXYCYCLINE [Suspect]
     Active Substance: DOXYCYCLINE
     Indication: Cheilitis
  10. ISOTRETINOIN [Suspect]
     Active Substance: ISOTRETINOIN
     Indication: Oral pustule
     Dosage: 10 MG, Q24D
  11. ISOTRETINOIN [Suspect]
     Active Substance: ISOTRETINOIN
     Indication: Cheilitis
  12. METHOTREXATE [Suspect]
     Active Substance: METHOTREXATE
     Indication: Cheilitis
  13. METHOTREXATE [Suspect]
     Active Substance: METHOTREXATE
     Indication: Cheilitis
  14. METHOTREXATE [Suspect]
     Active Substance: METHOTREXATE
     Indication: Oral pustule
  15. TACROLIMUS [Suspect]
     Active Substance: TACROLIMUS
     Indication: Prophylaxis
     Route: 061
  16. TACROLIMUS [Suspect]
     Active Substance: TACROLIMUS
     Indication: Cheilitis
  17. PARAFFIN [Concomitant]
     Active Substance: PARAFFIN
     Indication: Cheilitis
  18. VALACYCLOVIR HYDROCHLORIDE [Concomitant]
     Active Substance: VALACYCLOVIR HYDROCHLORIDE
     Indication: Prophylaxis
     Dosage: 500 MG, Q12H
  19. HYDROCORTISONE VALERATE [Concomitant]
     Active Substance: HYDROCORTISONE VALERATE
     Indication: Cheilitis

REACTIONS (7)
  - Dermatitis [Recovered/Resolved]
  - Condition aggravated [Recovered/Resolved]
  - Cheilitis [Recovered/Resolved]
  - Eyelid irritation [Recovered/Resolved]
  - Off label use [Unknown]
  - Drug ineffective [Unknown]
  - Therapeutic product ineffective [Unknown]
